FAERS Safety Report 10919174 (Version 1)
Quarter: 2015Q1

REPORT INFORMATION
  Report Type: Spontaneous
  Country: DE (occurrence: DE)
  Receive Date: 20150316
  Receipt Date: 20150316
  Transmission Date: 20150721
  Serious: Yes (Other)
  Sender: FDA-Public Use
  Company Number: DE-MYLANLABS-2015M1008242

PATIENT

DRUGS (1)
  1. DIAZEPAM. [Suspect]
     Active Substance: DIAZEPAM
     Dosage: INJECTED 40 MG OF WATER-DISSOLVED DIAZEPAM INTO HIS FEMORAL ARTERY
     Route: 013

REACTIONS (3)
  - Incorrect route of drug administration [Recovered/Resolved]
  - Deep vein thrombosis [Unknown]
  - Peripheral ischaemia [Recovered/Resolved]
